FAERS Safety Report 6022584-2 (Version None)
Quarter: 2008Q4

REPORT INFORMATION
  Report Type: 
  Country: None (occurrence: None)
  Receive Date: 20081212
  Receipt Date: 20081212
  Transmission Date: 20090506
  Serious: Yes (Death)
  Sender: FDA-Public Use
  Company Number: None

PATIENT
  Age: 35 Year
  Sex: Female
  Weight: 49 kg

DRUGS (5)
  1. LAMIVUDINE [Suspect]
     Indication: HIV INFECTION
     Dosage: 150 MG BID ORAL
     Route: 048
     Dates: start: 20070131
  2. EFAVIRENZ [Suspect]
     Indication: HIV INFECTION
     Dosage: 600 MG QHS ORAL
     Route: 048
     Dates: start: 20070131
  3. ZIDOVUDINE [Suspect]
     Indication: HIV INFECTION
     Dosage: 300 MG BID ORAL
     Route: 048
     Dates: start: 20070131
  4. INDOMETHACIN [Concomitant]
  5. SULFAMETHOXAZOLE AND TRIMETHOPRIM [Concomitant]

REACTIONS (16)
  - ABDOMINAL PAIN [None]
  - ABDOMINAL TENDERNESS [None]
  - ARTHRALGIA [None]
  - BACK PAIN [None]
  - CHEST DISCOMFORT [None]
  - CHEST PAIN [None]
  - CHEST X-RAY ABNORMAL [None]
  - COUGH [None]
  - EATING DISORDER [None]
  - HEADACHE [None]
  - INTERSTITIAL LUNG DISEASE [None]
  - MALAISE [None]
  - MOVEMENT DISORDER [None]
  - NEUTROPHIL COUNT DECREASED [None]
  - OSTEOARTHRITIS [None]
  - SCIATICA [None]
